FAERS Safety Report 19784260 (Version 6)
Quarter: 2022Q3

REPORT INFORMATION
  Report Type: Spontaneous
  Country: US (occurrence: US)
  Receive Date: 20210903
  Receipt Date: 20220912
  Transmission Date: 20221027
  Serious: No
  Sender: FDA-Public Use
  Company Number: US-ALLERGAN-2121286US

PATIENT
  Sex: Male
  Weight: 79.365 kg

DRUGS (8)
  1. ANDRODERM [Suspect]
     Active Substance: TESTOSTERONE
     Indication: Congenital hypogonadotropic hypogonadism
     Dosage: 4 MG, QD
     Dates: start: 1991
  2. ANDRODERM [Suspect]
     Active Substance: TESTOSTERONE
     Indication: Congenital hypogonadotropic hypogonadism
     Dosage: 4 MG, QD
  3. ANDRODERM [Suspect]
     Active Substance: TESTOSTERONE
     Indication: Congenital hypogonadotropic hypogonadism
     Dosage: 4 MG, QD
  4. ANDRODERM [Suspect]
     Active Substance: TESTOSTERONE
     Indication: Congenital hypogonadotropic hypogonadism
     Dosage: 4 MG, QD
  5. ANDRODERM [Suspect]
     Active Substance: TESTOSTERONE
     Indication: Congenital hypogonadotropic hypogonadism
     Dosage: 4 MG, QD
  6. MODERNA COVID-19 VACCINE [Concomitant]
     Active Substance: ELASOMERAN
     Dosage: UNK
     Dates: start: 20210331, end: 20210331
  7. MODERNA COVID-19 VACCINE [Concomitant]
     Active Substance: ELASOMERAN
     Dosage: UNK
     Dates: start: 20210303, end: 20210303
  8. INSULIN NOS [Concomitant]
     Active Substance: INSULIN NOS
     Indication: Type 2 diabetes mellitus
     Dosage: UNK
     Dates: start: 2011

REACTIONS (2)
  - Decreased insulin requirement [Not Recovered/Not Resolved]
  - Drug ineffective [Unknown]
